FAERS Safety Report 10544166 (Version 1)
Quarter: 2014Q4

REPORT INFORMATION
  Report Type: Spontaneous
  Country: US (occurrence: US)
  Receive Date: 20141027
  Receipt Date: 20141027
  Transmission Date: 20150529
  Serious: No
  Sender: FDA-Public Use
  Company Number: US-BAUSCH-SYM-2013-12070

PATIENT
  Age: 61 Year
  Sex: Female

DRUGS (3)
  1. ATIVAN [Suspect]
     Active Substance: LORAZEPAM
     Indication: ANXIETY
     Route: 048
     Dates: start: 20131022, end: 20131022
  2. IODINE BASED DYE [Suspect]
     Active Substance: IODINE
     Indication: IMAGING PROCEDURE
     Dates: start: 20131022, end: 20131022
  3. EOVIST [Suspect]
     Active Substance: GADOXETATE DISODIUM
     Indication: PRODUCT USED FOR UNKNOWN INDICATION
     Dates: start: 20131022, end: 20131022

REACTIONS (3)
  - Hypoacusis [Not Recovered/Not Resolved]
  - Lethargy [Unknown]
  - Somnolence [Unknown]

NARRATIVE: CASE EVENT DATE: 20131022
